FAERS Safety Report 19857647 (Version 1)
Quarter: 2021Q3

REPORT INFORMATION
  Report Type: Report from Study
  Country: GB (occurrence: GB)
  Receive Date: 20210920
  Receipt Date: 20210920
  Transmission Date: 20211014
  Serious: Yes (Other)
  Sender: FDA-Public Use
  Company Number: GB-UCBSA-2021043248

PATIENT
  Sex: Male

DRUGS (6)
  1. CERTOLIZUMAB PEGOL ASP AUTOCLICKS [Suspect]
     Active Substance: CERTOLIZUMAB PEGOL
     Dosage: 400 MILLIGRAM, EV 4 WEEKS
  2. CERTOLIZUMAB PEGOL ASP AUTOCLICKS [Suspect]
     Active Substance: CERTOLIZUMAB PEGOL
     Indication: ANKYLOSING SPONDYLITIS
     Dosage: 400 MILLIGRAM, EV 2 WEEKS(QOW)
     Dates: start: 20161214
  3. CERTOLIZUMAB PEGOL ASP AUTOCLICKS [Suspect]
     Active Substance: CERTOLIZUMAB PEGOL
     Dosage: 200 MILLIGRAM, EV 2 WEEKS(QOW)
  4. CERTOLIZUMAB PEGOL ASP AUTOCLICKS [Suspect]
     Active Substance: CERTOLIZUMAB PEGOL
     Dosage: 400 MILLIGRAM, MONTHLY (QM)
     Route: 058
  5. CERTOLIZUMAB PEGOL ASP AUTOCLICKS [Suspect]
     Active Substance: CERTOLIZUMAB PEGOL
     Dosage: 400 MILLIGRAM, MONTHLY (QM)
  6. CERTOLIZUMAB PEGOL ASP AUTOCLICKS [Suspect]
     Active Substance: CERTOLIZUMAB PEGOL
     Dosage: 400 MILLIGRAM, EV 4 WEEKS
     Route: 058

REACTIONS (2)
  - COVID-19 [Unknown]
  - Off label use [Unknown]
